FAERS Safety Report 4940308-4 (Version None)
Quarter: 2006Q1

REPORT INFORMATION
  Report Type: 
  Country: None (occurrence: None)
  Receive Date: 20060310
  Receipt Date: 20050823
  Transmission Date: 20060701
  Serious: Yes (Hospitalization, Disabling, Other)
  Sender: FDA-Public Use
  Company Number: US-MERCK-0508USA03893

PATIENT
  Age: 71 Year
  Sex: Male
  Weight: 109 kg

DRUGS (6)
  1. VIOXX [Suspect]
     Indication: ARTHRALGIA
     Route: 048
     Dates: start: 20020601, end: 20041101
  2. LIPITOR [Concomitant]
     Indication: HYPERCHOLESTEROLAEMIA
     Route: 065
  3. PLAVIX [Concomitant]
     Indication: ANTIPLATELET THERAPY
     Route: 065
  4. ASPIRIN [Concomitant]
     Route: 048
  5. COUMADIN [Concomitant]
     Indication: ANTICOAGULANT THERAPY
     Route: 065
  6. LASIX [Concomitant]
     Indication: POLYURIA
     Route: 065

REACTIONS (7)
  - ARTERIAL BYPASS OPERATION [None]
  - BLADDER CANCER [None]
  - CARDIAC DISORDER [None]
  - CEREBROVASCULAR ACCIDENT [None]
  - MYOCARDIAL INFARCTION [None]
  - POLYP [None]
  - URINARY BLADDER POLYP [None]
